FAERS Safety Report 5245372-3 (Version None)
Quarter: 2007Q1

REPORT INFORMATION
  Report Type: 
  Country: None (occurrence: None)
  Receive Date: 20070223
  Receipt Date: 20070215
  Transmission Date: 20070707
  Serious: Yes (Hospitalization, Disabling)
  Sender: FDA-Public Use
  Company Number: US-GILEAD-2007-0011152

PATIENT
  Sex: Male
  Weight: 66.284 kg

DRUGS (10)
  1. TRUVADA [Suspect]
     Indication: HIV INFECTION
     Route: 048
     Dates: start: 20061115, end: 20070119
  2. TRUVADA [Suspect]
     Dates: start: 20050101
  3. REYATAZ [Concomitant]
     Indication: HIV INFECTION
     Route: 048
     Dates: start: 20061001, end: 20070119
  4. REYATAZ [Concomitant]
     Dates: start: 20050101
  5. RITONAVIR [Concomitant]
     Indication: HIV INFECTION
     Route: 048
     Dates: start: 20061001, end: 20070119
  6. RITONAVIR [Concomitant]
     Dates: start: 20050101
  7. LEXAPRO [Concomitant]
     Indication: DEPRESSION
     Route: 048
     Dates: start: 20060101, end: 20070119
  8. TRAZODONE HCL [Concomitant]
     Indication: DEPRESSION
     Route: 048
     Dates: end: 20070119
  9. ULTRASE MT20 [Concomitant]
     Indication: PANCREATITIS
     Route: 048
     Dates: start: 20061001, end: 20070119
  10. OXANDRIN [Concomitant]
     Indication: CACHEXIA
     Route: 048
     Dates: start: 20061208, end: 20070114

REACTIONS (3)
  - ANAEMIA [None]
  - NEUTROPENIA [None]
  - RENAL FAILURE ACUTE [None]
